FAERS Safety Report 4588736-3 (Version None)
Quarter: 2005Q1

REPORT INFORMATION
  Report Type: 
  Country: None (occurrence: None)
  Receive Date: 20050216
  Receipt Date: 20050201
  Transmission Date: 20050727
  Serious: Yes (Hospitalization)
  Sender: FDA-Public Use
  Company Number: US_0412109449

PATIENT
  Age: 40 Year
  Sex: Male
  Weight: 71 kg

DRUGS (3)
  1. OLANZAPINE [Suspect]
     Indication: SCHIZOPHRENIA
     Dates: start: 20041116
  2. BIFEPRUNOX [Suspect]
     Indication: SCHIZOPHRENIA
     Dates: start: 20041116
  3. LORAZEPAM [Concomitant]

REACTIONS (6)
  - AGGRESSION [None]
  - AKATHISIA [None]
  - DYSKINESIA [None]
  - INSOMNIA [None]
  - IRRITABILITY [None]
  - PSYCHOTIC DISORDER [None]
